FAERS Safety Report 8518616 (Version 2)
Quarter: 2013Q3

REPORT INFORMATION
  Report Type: Spontaneous
  Country: US (occurrence: US)
  Receive Date: 20120417
  Receipt Date: 20130913
  Transmission Date: 20140515
  Serious: No
  Sender: FDA-Public Use
  Company Number: US-ASTRAZENECA-2012SE01792

PATIENT
  Age: 50 Year
  Sex: Female
  Weight: 77.6 kg

DRUGS (4)
  1. NEXIUM [Suspect]
     Indication: GASTROOESOPHAGEAL REFLUX DISEASE
     Route: 048
  2. SEROQUEL XR [Suspect]
     Indication: GENERALISED ANXIETY DISORDER
     Route: 048
  3. CRESTOR [Suspect]
     Indication: BLOOD CHOLESTEROL ABNORMAL
     Route: 048
  4. CLONAPIN [Concomitant]
     Indication: ANXIETY

REACTIONS (9)
  - Weight decreased [Unknown]
  - Gastrooesophageal reflux disease [Unknown]
  - Activities of daily living impaired [Unknown]
  - Blood cholesterol increased [Unknown]
  - Vomiting [Unknown]
  - Middle insomnia [Unknown]
  - Off label use [Unknown]
  - Intentional drug misuse [Unknown]
  - Drug dose omission [Unknown]
